FAERS Safety Report 19450225 (Version 1)
Quarter: 2021Q2

REPORT INFORMATION
  Report Type: Spontaneous
  Country: GB (occurrence: GB)
  Receive Date: 20210622
  Receipt Date: 20210622
  Transmission Date: 20210717
  Serious: Yes (Hospitalization, Other)
  Sender: FDA-Public Use
  Company Number: GB-PFIZER INC-2021693150

PATIENT
  Age: 57 Year
  Sex: Female

DRUGS (5)
  1. LEFLUNOMIDE. [Concomitant]
     Active Substance: LEFLUNOMIDE
     Indication: RHEUMATOID ARTHRITIS
  2. DEPO?MEDRONE [Suspect]
     Active Substance: METHYLPREDNISOLONE
  3. HYDROXYQUINOLINE [Concomitant]
     Active Substance: OXYQUINOLINE
     Indication: RHEUMATOID ARTHRITIS
  4. ASTRAZENECA COVID?19 VACCINE [Suspect]
     Active Substance: AZD-1222
     Dosage: DOSE 1, SINGLE
     Dates: start: 20210314, end: 20210314
  5. NAPROXEN. [Concomitant]
     Active Substance: NAPROXEN
     Indication: RHEUMATOID ARTHRITIS

REACTIONS (5)
  - Rheumatoid arthritis [Recovered/Resolved]
  - Rash [Unknown]
  - Skin exfoliation [Unknown]
  - Abnormal weight gain [Unknown]
  - Pruritus [Unknown]

NARRATIVE: CASE EVENT DATE: 20210321
